FAERS Safety Report 7542115-5 (Version None)
Quarter: 2011Q2

REPORT INFORMATION
  Report Type: 
  Country: None (occurrence: None)
  Receive Date: 20110524
  Receipt Date: 20110325
  Transmission Date: 20111010
  Serious: No
  Sender: FDA-Public Use
  Company Number: 029064

PATIENT
  Sex: Female

DRUGS (1)
  1. CIMZIA [Suspect]
     Indication: RHEUMATOID ARTHRITIS
     Dosage: (400 MG 1X/2 WEEKS, LYO SUBCUTANEOUS)
     Route: 058
     Dates: start: 20110224

REACTIONS (10)
  - PYREXIA [None]
  - RHINORRHOEA [None]
  - EYE PRURITUS [None]
  - GROIN PAIN [None]
  - WALKING AID USER [None]
  - GAIT DISTURBANCE [None]
  - DIARRHOEA [None]
  - COUGH [None]
  - DRY EYE [None]
  - BACK PAIN [None]
